FAERS Safety Report 19239780 (Version 1)
Quarter: 2021Q2

REPORT INFORMATION
  Report Type: Spontaneous
  Country: US (occurrence: US)
  Receive Date: 20210511
  Receipt Date: 20210511
  Transmission Date: 20210717
  Serious: Yes (Hospitalization)
  Sender: FDA-Public Use
  Company Number: US-ACCORD-220479

PATIENT
  Age: 48 Year

DRUGS (3)
  1. DOCETAXEL ACCORD [Suspect]
     Active Substance: DOCETAXEL
     Indication: CHEMOTHERAPY
     Dates: start: 20170926, end: 20180410
  2. TRASTUZUMAB. [Suspect]
     Active Substance: TRASTUZUMAB
     Dates: start: 20170926
  3. CARBOPLATIN. [Suspect]
     Active Substance: CARBOPLATIN
     Indication: CHEMOTHERAPY
     Dates: start: 20170926

REACTIONS (5)
  - Diarrhoea [Unknown]
  - Dacryostenosis acquired [Unknown]
  - Nausea [Unknown]
  - Vomiting [Unknown]
  - Abscess [Unknown]
